FAERS Safety Report 24248869 (Version 1)
Quarter: 2024Q3

REPORT INFORMATION
  Report Type: Spontaneous
  Country: US (occurrence: None)
  Receive Date: 20240823
  Receipt Date: 20240823
  Transmission Date: 20241017
  Serious: Yes (Hospitalization)
  Sender: Public
  Company Number: None

PATIENT
  Sex: Female

DRUGS (1)
  1. GAMMAGARD LIQUID [Suspect]
     Active Substance: HUMAN IMMUNOGLOBULIN G
     Dosage: FREQUENCY : EVERY OTHER WEEK;?
     Route: 042
     Dates: start: 201610

REACTIONS (10)
  - Urine output decreased [None]
  - Decreased appetite [None]
  - Dyspnoea [None]
  - Headache [None]
  - Peripheral swelling [None]
  - Peripheral swelling [None]
  - Staphylococcal sepsis [None]
  - Renal disorder [None]
  - Dialysis [None]
  - Oedema peripheral [None]
